FAERS Safety Report 8766482 (Version 2)
Quarter: 2012Q4

REPORT INFORMATION
  Report Type: 
  Country: JP (occurrence: JP)
  Receive Date: 20120904
  Receipt Date: 20121005
  Transmission Date: 20130627
  Serious: Yes (Hospitalization)
  Sender: FDA-Public Use
  Company Number: JP-ROCHE-1114884

PATIENT
  Age: 68 Year
  Sex: Male
  Weight: 65 kg

DRUGS (12)
  1. XELODA [Suspect]
     Indication: ADJUVANT THERAPY
     Dosage: It is one administering weekly holiday medicine for two weeks.
     Route: 048
     Dates: start: 20120711
  2. DEXAMETHASONE [Suspect]
     Indication: PRODUCT USED FOR UNKNOWN INDICATION
     Route: 041
     Dates: start: 20120711
  3. ELPLAT [Suspect]
     Indication: ADJUVANT THERAPY
     Route: 041
     Dates: start: 20120711
  4. CALCIUM GLUCONATE [Concomitant]
     Dosage: It is once/three weeks of 85mg twice/day.
     Route: 041
     Dates: start: 20120711
  5. MAGNESIUM SULFATE [Concomitant]
     Dosage: It is once/three weeks of 8mEq twice/day.
     Route: 041
     Dates: start: 20120711
  6. AZASETRON HYDROCHLORIDE [Concomitant]
     Route: 041
     Dates: start: 20120711
  7. RANITIDINE [Concomitant]
     Route: 041
     Dates: start: 20120711
  8. CILOSTAZOL [Concomitant]
     Indication: CEREBRAL INFARCTION
     Route: 048
     Dates: start: 20040415
  9. ASPIRIN [Concomitant]
     Indication: CEREBRAL INFARCTION
     Route: 048
     Dates: start: 20020914
  10. PITAVASTATIN CALCIUM [Concomitant]
     Indication: HYPERLIPIDAEMIA
     Route: 048
     Dates: start: 20071003
  11. LOSARTAN/HCTZ [Concomitant]
     Indication: HYPERTENSION
     Route: 048
     Dates: start: 20091005
  12. NATEGLINIDE [Concomitant]
     Indication: TYPE 2 DIABETES MELLITUS
     Route: 048
     Dates: start: 20080530

REACTIONS (4)
  - Hiccups [Recovered/Resolved]
  - Vomiting [Recovered/Resolved]
  - Nausea [Recovered/Resolved]
  - Pyrexia [Recovered/Resolved]
